FAERS Safety Report 25699290 (Version 1)
Quarter: 2025Q3

REPORT INFORMATION
  Report Type: Spontaneous
  Country: US (occurrence: US)
  Receive Date: 20250819
  Receipt Date: 20250819
  Transmission Date: 20251021
  Serious: No
  Sender: NOVARTIS
  Company Number: US-002147023-NVSC2025US130248

PATIENT
  Age: 5 Year
  Sex: Male
  Weight: 15.88 kg

DRUGS (1)
  1. ILARIS [Suspect]
     Active Substance: CANAKINUMAB
     Indication: Product used for unknown indication
     Dosage: 107 MG/KG, Q4W
     Route: 058
     Dates: start: 20250615, end: 20250815

REACTIONS (1)
  - Vomiting [Unknown]
